FAERS Safety Report 6829567-0 (Version None)
Quarter: 2010Q3

REPORT INFORMATION
  Report Type: 
  Country: None (occurrence: None)
  Receive Date: 20100709
  Receipt Date: 20070330
  Transmission Date: 20110219
  Serious: No
  Sender: FDA-Public Use
  Company Number: US-PFIZER INC-2007005222

PATIENT
  Sex: Female
  Weight: 70.31 kg

DRUGS (6)
  1. CHANTIX [Suspect]
     Indication: SMOKING CESSATION THERAPY
     Route: 048
     Dates: start: 20070114
  2. MONTELUKAST SODIUM [Concomitant]
  3. ADVAIR DISKUS 100/50 [Concomitant]
  4. EVISTA [Concomitant]
  5. PREVACID [Concomitant]
  6. VYTORIN [Concomitant]

REACTIONS (12)
  - ABDOMINAL DISCOMFORT [None]
  - ABDOMINAL DISTENSION [None]
  - ABDOMINAL PAIN UPPER [None]
  - ABNORMAL DREAMS [None]
  - FEELING ABNORMAL [None]
  - FLATULENCE [None]
  - INCREASED APPETITE [None]
  - INFLUENZA LIKE ILLNESS [None]
  - NAUSEA [None]
  - SENSATION OF FOREIGN BODY [None]
  - VOMITING [None]
  - WEIGHT INCREASED [None]
